FAERS Safety Report 6348804-2 (Version None)
Quarter: 2009Q3

REPORT INFORMATION
  Report Type: 
  Country: None (occurrence: None)
  Receive Date: 20090911
  Receipt Date: 20090909
  Transmission Date: 20100115
  Serious: Yes (Hospitalization)
  Sender: FDA-Public Use
  Company Number: US-BRISTOL-MYERS SQUIBB COMPANY-14772354

PATIENT
  Age: 51 Year
  Sex: Female
  Weight: 122 kg

DRUGS (3)
  1. ABILIFY [Suspect]
     Indication: WEIGHT INCREASED
  2. ABILIFY [Suspect]
     Indication: BIPOLAR DISORDER
  3. ZYPREXA [Concomitant]

REACTIONS (1)
  - ABNORMAL BEHAVIOUR [None]
